FAERS Safety Report 14797726 (Version 2)
Quarter: 2018Q3

REPORT INFORMATION
  Report Type: Spontaneous
  Country: ES (occurrence: ES)
  Receive Date: 20180424
  Receipt Date: 20180725
  Transmission Date: 20181010
  Serious: Yes (Life-Threatening, Hospitalization, Congenital Anomaly, Other)
  Sender: FDA-Public Use
  Company Number: ES-ACCORD-066109

PATIENT
  Age: 32 Week
  Sex: Male

DRUGS (2)
  1. AMLODIPINE [Concomitant]
     Active Substance: AMLODIPINE BESYLATE
     Route: 064
  2. OLMESARTAN/OLMESARTAN MEDOXOMIL [Suspect]
     Active Substance: OLMESARTAN
     Indication: ESSENTIAL HYPERTENSION
     Route: 064

REACTIONS (12)
  - Areflexia [Recovered/Resolved]
  - Pneumothorax [Recovered/Resolved]
  - Anaemia [Recovered/Resolved]
  - Potter^s syndrome [Recovering/Resolving]
  - Hypotonia [Recovered/Resolved]
  - Proteinuria [Recovered/Resolved]
  - Renal failure [Recovered/Resolved]
  - Pulmonary hypoplasia [Recovered/Resolved]
  - Anuria [Recovered/Resolved]
  - Hypotension [Recovered/Resolved]
  - Oligohydramnios [Not Recovered/Not Resolved]
  - Foetal exposure during pregnancy [Unknown]
